FAERS Safety Report 11727366 (Version 1)
Quarter: 2015Q4

REPORT INFORMATION
  Report Type: Spontaneous
  Country: US (occurrence: US)
  Receive Date: 20151112
  Receipt Date: 20151112
  Transmission Date: 20160304
  Serious: No
  Sender: FDA-Public Use
  Company Number: US-PFIZER INC-2015371644

PATIENT
  Age: 56 Year
  Sex: Female

DRUGS (5)
  1. NIACIN. [Concomitant]
     Active Substance: NIACIN
     Indication: BLOOD CHOLESTEROL INCREASED
     Dosage: 1 DF, 1X/DAY, WITH FOOD
     Route: 048
  2. GABAPENTIN. [Suspect]
     Active Substance: GABAPENTIN
     Indication: NEURALGIA
     Dosage: 1000 MG, DAILY
     Dates: start: 2000
  3. GABAPENTIN. [Suspect]
     Active Substance: GABAPENTIN
     Dosage: ON MORE THAN THE MAXIMUM AMOUNT
  4. ATENOLOL. [Concomitant]
     Active Substance: ATENOLOL
     Indication: HYPERTENSION
     Dosage: 50 MG, 1X/DAY
     Route: 048
  5. NAPROXEN. [Concomitant]
     Active Substance: NAPROXEN
     Indication: PAIN
     Dosage: 500 MG, 2X/DAY, EVERY 12 HOURS

REACTIONS (5)
  - Condition aggravated [Unknown]
  - Drug ineffective [Unknown]
  - Pain [Unknown]
  - Overdose [Unknown]
  - Gait disturbance [Unknown]
